FAERS Safety Report 7425037-X (Version None)
Quarter: 2011Q2

REPORT INFORMATION
  Report Type: 
  Country: None (occurrence: None)
  Receive Date: 20110420
  Receipt Date: 20110407
  Transmission Date: 20111010
  Serious: Yes (Other)
  Sender: FDA-Public Use
  Company Number: US-BAYER-2011-031125

PATIENT
  Age: 62 Year
  Sex: Male

DRUGS (4)
  1. LEVITRA [Suspect]
     Indication: PERIPHERAL VASCULAR DISORDER
     Dosage: 20 MG, HS
     Route: 048
     Dates: start: 20030801
  2. ACTOS [Concomitant]
  3. REGULAR INSULIN [Concomitant]
  4. IBUPROFEN [Concomitant]

REACTIONS (2)
  - PRIAPISM [None]
  - PRE-EXISTING CONDITION IMPROVED [None]
